FAERS Safety Report 12266264 (Version 1)
Quarter: 2016Q2

REPORT INFORMATION
  Report Type: Spontaneous
  Country: US (occurrence: None)
  Receive Date: 20160413
  Receipt Date: 20160413
  Transmission Date: 20160815
  Serious: No
  Sender: FDA-Public Use
  Company Number: None

PATIENT
  Age: 26 Year
  Sex: Female
  Weight: 60.33 kg

DRUGS (4)
  1. NEXPLANON [Suspect]
     Active Substance: ETONOGESTREL
     Indication: CONTRACEPTION
     Dates: start: 20160211, end: 20160328
  2. FENNEL. [Concomitant]
     Active Substance: FENNEL
  3. BLESSED THISTLE [Concomitant]
  4. FENUGREEK [Concomitant]
     Active Substance: FENUGREEK SEED

REACTIONS (1)
  - Suppressed lactation [None]

NARRATIVE: CASE EVENT DATE: 20160303
